FAERS Safety Report 21139923 (Version 1)
Quarter: 2022Q3

REPORT INFORMATION
  Report Type: Spontaneous
  Country: ES (occurrence: ES)
  Receive Date: 20220728
  Receipt Date: 20220728
  Transmission Date: 20221027
  Serious: Yes (Death, Hospitalization, Other)
  Sender: FDA-Public Use
  Company Number: ES-AEMPS-1225025

PATIENT
  Age: 96 Year
  Sex: Male

DRUGS (3)
  1. ERTAPENEM SODIUM [Suspect]
     Active Substance: ERTAPENEM SODIUM
     Indication: Bacteraemia
     Dosage: 1 GRAM, ONCE A DAY
     Route: 042
     Dates: start: 20220527, end: 20220602
  2. RISPERIDONE [Suspect]
     Active Substance: RISPERIDONE
     Indication: Confusional state
     Dosage: 0.5 MILLIGRAM, ONCE A DAY
     Route: 048
     Dates: start: 20220528, end: 20220531
  3. HALOPERIDOL [Suspect]
     Active Substance: HALOPERIDOL
     Indication: Confusional state
     Route: 048
     Dates: start: 20220529, end: 20220529

REACTIONS (1)
  - Encephalopathy [Fatal]

NARRATIVE: CASE EVENT DATE: 20220602
